FAERS Safety Report 4352367-0 (Version None)
Quarter: 2004Q2

REPORT INFORMATION
  Report Type: 
  Country: None (occurrence: None)
  Receive Date: 20040423
  Receipt Date: 20031216
  Transmission Date: 20050107
  Serious: Yes (Hospitalization, Disabling)
  Sender: FDA-Public Use
  Company Number: CIP03003451

PATIENT
  Age: 79 Year
  Sex: Female

DRUGS (8)
  1. MACROBID [Suspect]
     Indication: PROPHYLAXIS
     Dosage: 100 MG DAILY, ORAL
     Route: 048
     Dates: start: 20030701, end: 20030701
  2. ZOLOFT [Concomitant]
  3. VERAPAMIL [Concomitant]
  4. LIPITOR [Concomitant]
  5. ACTONEL [Concomitant]
  6. EVISTA [Concomitant]
  7. IMIPRAMINE [Concomitant]
  8. NEXIUM [Concomitant]

REACTIONS (4)
  - DYSPNOEA [None]
  - HYPOXIA [None]
  - INTERSTITIAL LUNG DISEASE [None]
  - PULMONARY FIBROSIS [None]
